FAERS Safety Report 5927450-6 (Version None)
Quarter: 2008Q4

REPORT INFORMATION
  Report Type: 
  Country: None (occurrence: None)
  Receive Date: 20081022
  Receipt Date: 20081022
  Transmission Date: 20090506
  Serious: Yes (Hospitalization)
  Sender: FDA-Public Use
  Company Number: None

PATIENT
  Sex: Female
  Weight: 55.3388 kg

DRUGS (2)
  1. ACTONEL [Suspect]
     Indication: OSTEOPOROSIS
     Dosage: 1 TAB. MONTHLY PO
     Route: 048
     Dates: start: 20080715
  2. BONIVA [Concomitant]

REACTIONS (2)
  - ATRIAL FIBRILLATION [None]
  - DYSPEPSIA [None]
